FAERS Safety Report 24062878 (Version 3)
Quarter: 2024Q4

REPORT INFORMATION
  Report Type: Spontaneous
  Country: US (occurrence: US)
  Receive Date: 20240709
  Receipt Date: 20241010
  Transmission Date: 20250115
  Serious: No
  Sender: NOVARTIS
  Company Number: US-002147023-NVSC2024US139086

PATIENT
  Sex: Female

DRUGS (1)
  1. COSENTYX [Suspect]
     Active Substance: SECUKINUMAB
     Indication: Product used for unknown indication
     Dosage: 150 MG, (2/MONTH 1 IN EACH THIGH)
     Route: 065

REACTIONS (3)
  - Device deployment issue [Unknown]
  - Device leakage [Unknown]
  - Incorrect dose administered [Unknown]
